FAERS Safety Report 5020984-0 (Version None)
Quarter: 2006Q2

REPORT INFORMATION
  Report Type: 
  Country: None (occurrence: None)
  Receive Date: 20060606
  Receipt Date: 20060606
  Transmission Date: 20061013
  Serious: Yes (Hospitalization)
  Sender: FDA-Public Use
  Company Number: None

PATIENT
  Age: 65 Year
  Sex: Male
  Weight: 85 kg

DRUGS (2)
  1. COMBIVENT [Suspect]
     Indication: MITRAL VALVE REPLACEMENT
     Dosage: 2    Q4     INHAL
     Route: 055
  2. COMBIVENT [Suspect]
     Indication: TRICUSPID VALVE REPLACEMENT
     Dosage: 2    Q4     INHAL
     Route: 055

REACTIONS (5)
  - ACINETOBACTER INFECTION [None]
  - BACTERIAL INFECTION [None]
  - DEVICE RELATED INFECTION [None]
  - PHARMACEUTICAL PRODUCT COMPLAINT [None]
  - PNEUMONIA [None]
